FAERS Safety Report 11909667 (Version 1)
Quarter: 2016Q1

REPORT INFORMATION
  Report Type: Spontaneous
  Country: TR (occurrence: TR)
  Receive Date: 20160112
  Receipt Date: 20160112
  Transmission Date: 20160526
  Serious: Yes (Other)
  Sender: FDA-Public Use
  Company Number: TR-PAR PHARMACEUTICAL COMPANIES-2016SCPR015077

PATIENT

DRUGS (1)
  1. FENTANYL TRANSDERMAL SYSTEM [Suspect]
     Active Substance: FENTANYL
     Indication: ARTHRALGIA
     Dosage: 3 PATCH, ONE AFTER ANOTHER
     Route: 062

REACTIONS (14)
  - Bradycardia [Unknown]
  - Hypotension [Unknown]
  - Cardio-respiratory arrest [Recovering/Resolving]
  - Electrocardiogram T wave amplitude decreased [Unknown]
  - Nausea [Unknown]
  - Accidental overdose [Unknown]
  - Intentional product misuse [Unknown]
  - Hyperhidrosis [Unknown]
  - Respiratory depression [Recovering/Resolving]
  - Chest discomfort [Unknown]
  - Troponin increased [Unknown]
  - Electrocardiogram T wave inversion [Unknown]
  - Dizziness [Unknown]
  - Drug ineffective [Unknown]
